FAERS Safety Report 7321449-3 (Version None)
Quarter: 2011Q1

REPORT INFORMATION
  Report Type: 
  Country: None (occurrence: None)
  Receive Date: 20110228
  Receipt Date: 20100514
  Transmission Date: 20110831
  Serious: Yes (Other)
  Sender: FDA-Public Use
  Company Number: US-PFIZER INC-2010061365

PATIENT
  Sex: Female
  Weight: 49.887 kg

DRUGS (2)
  1. GEODON [Suspect]
     Indication: BIPOLAR DISORDER
     Dosage: 60 MG, 2X/DAY
     Route: 048
     Dates: start: 20100513
  2. SEROQUEL [Suspect]

REACTIONS (3)
  - DIZZINESS [None]
  - ASTHENIA [None]
  - SOMNOLENCE [None]
